FAERS Safety Report 18428472 (Version 1)
Quarter: 2020Q4

REPORT INFORMATION
  Report Type: Report from Study
  Country: US (occurrence: US)
  Receive Date: 20201026
  Receipt Date: 20201026
  Transmission Date: 20210114
  Serious: Yes (Hospitalization)
  Sender: FDA-Public Use
  Company Number: US-BAYER-2020-227944

PATIENT
  Age: 63 Year
  Sex: Male

DRUGS (2)
  1. VITRAKVI [Suspect]
     Active Substance: LAROTRECTINIB
     Indication: BRAIN NEOPLASM MALIGNANT
     Dosage: 2, 25 MG CAPSULES (50 MG) BID
     Route: 048
  2. VITRAKVI [Suspect]
     Active Substance: LAROTRECTINIB
     Indication: BRAIN NEOPLASM MALIGNANT
     Dosage: 1, 100 MG CAPSULE WITH 1, 25 MG CAPSULES BID
     Route: 048

REACTIONS (2)
  - Off label use [None]
  - Hospitalisation [None]
